FAERS Safety Report 20060689 (Version 1)
Quarter: 2021Q4

REPORT INFORMATION
  Report Type: Spontaneous
  Country: US (occurrence: US)
  Receive Date: 20211112
  Receipt Date: 20211112
  Transmission Date: 20220303
  Serious: Yes (Hospitalization, Other)
  Sender: FDA-Public Use
  Company Number: US-Shilpa Medicare Limited-SML-US-2021-01344

PATIENT
  Sex: Female

DRUGS (6)
  1. IMATINIB [Suspect]
     Active Substance: IMATINIB
     Indication: Chronic myeloid leukaemia
     Dosage: DURING MOTHER EARLY FIRST TRIMESTER, PATIENT DISCONTINUED IMATINIB THERAPY
     Route: 065
  2. IMATINIB [Suspect]
     Active Substance: IMATINIB
     Dosage: AT 27 WEEKS AND 6 DAYS OF GESTATION
     Route: 065
  3. BETAMETHASONE [Concomitant]
     Active Substance: BETAMETHASONE
     Indication: Product used for unknown indication
     Route: 065
  4. ACETAMINOPHEN [Concomitant]
     Active Substance: ACETAMINOPHEN
     Indication: Cancer pain
     Route: 065
  5. DIAMORPHINE [Concomitant]
     Active Substance: DIAMORPHINE
     Indication: Cancer pain
     Dosage: LAST USE OF DIAMORPHINE,14 MONTHS PRIOR TO PREGNANCY.
     Route: 042
  6. ONDANSETRON [Concomitant]
     Active Substance: ONDANSETRON
     Indication: Nausea
     Route: 065

REACTIONS (4)
  - Hyperbilirubinaemia [Unknown]
  - Poor feeding infant [Unknown]
  - Premature baby [Recovered/Resolved]
  - Foetal exposure during pregnancy [Recovered/Resolved]
